FAERS Safety Report 24030951 (Version 1)
Quarter: 2024Q2

REPORT INFORMATION
  Report Type: Spontaneous
  Country: CN (occurrence: CN)
  Receive Date: 20240628
  Receipt Date: 20240628
  Transmission Date: 20240715
  Serious: Yes (Other)
  Sender: FDA-Public Use
  Company Number: CN-ANIPHARMA-2024-CN-000220

PATIENT
  Age: 17 Year
  Sex: Female
  Weight: 67 kg

DRUGS (3)
  1. FLUVOXAMINE [Suspect]
     Active Substance: FLUVOXAMINE
     Indication: Depression
     Dosage: 10.0 MILLIGRAM(S) (10 MILLIGRAM(S), 1 IN 1 DAY)
     Route: 048
     Dates: start: 20240613, end: 20240625
  2. SEROQUEL [Suspect]
     Active Substance: QUETIAPINE FUMARATE
     Dosage: 0.2 GRAM(S) (0.2 GRAM(S), 1 IN 1 DAY)
     Route: 048
     Dates: start: 20240613, end: 20240625
  3. LITHIUM CARBONATE [Suspect]
     Active Substance: LITHIUM CARBONATE
     Dosage: 0.5 GRAM(S) (0.25 GRAM(S), 2 IN 1 DAY)
     Route: 048
     Dates: start: 20240606, end: 20240625

REACTIONS (2)
  - Hepatic function abnormal [Unknown]
  - Product use in unapproved indication [Recovered/Resolved]

NARRATIVE: CASE EVENT DATE: 20240613
